FAERS Safety Report 7944048-9 (Version None)
Quarter: 2011Q4

REPORT INFORMATION
  Report Type: 
  Country: None (occurrence: None)
  Receive Date: 20111128
  Receipt Date: 20111115
  Transmission Date: 20120403
  Serious: Yes (Other)
  Sender: FDA-Public Use
  Company Number: CA-ASTRAZENECA-2011SE69094

PATIENT
  Age: 77 Year
  Sex: Female
  Weight: 71.7 kg

DRUGS (4)
  1. METOPROLOL TARTRATE [Concomitant]
     Route: 048
  2. LIPITOR [Concomitant]
     Route: 048
  3. APO ENALAPRIL MALEATE/HCTZ [Concomitant]
     Route: 048
  4. ARIMIDEX [Suspect]
     Route: 048

REACTIONS (1)
  - BONE DENSITY DECREASED [None]
